FAERS Safety Report 8247315-7 (Version None)
Quarter: 2012Q1

REPORT INFORMATION
  Report Type: 
  Country: None (occurrence: None)
  Receive Date: 20120327
  Receipt Date: 20120314
  Transmission Date: 20120608
  Serious: Yes (Death)
  Sender: FDA-Public Use
  Company Number: TCI2012A01351

PATIENT
  Age: 91 Year
  Sex: Female

DRUGS (6)
  1. OLMESARTAN MEDOXOMIL [Concomitant]
  2. RABEPRAZOLE SODIUM [Concomitant]
  3. ADALAT [Concomitant]
  4. PIOGLITAZONE HYDROCHLORIDE/GLIMEPIRIDE [Suspect]
     Indication: TYPE 2 DIABETES MELLITUS
     Dosage: 1 TAB. (1 TAB.,1 IN 1 D) PER ORAL
     Route: 048
     Dates: start: 20111015
  5. SITAGLIPTIN PHOSPHATE [Suspect]
  6. METOPROLOL TARTRATE [Concomitant]

REACTIONS (2)
  - SUDDEN DEATH [None]
  - DYSPNOEA [None]
